FAERS Safety Report 17347154 (Version 1)
Quarter: 2020Q1

REPORT INFORMATION
  Report Type: Spontaneous
  Country: US (occurrence: US)
  Receive Date: 20200129
  Receipt Date: 20200129
  Transmission Date: 20200409
  Serious: Yes (Other)
  Sender: FDA-Public Use
  Company Number: None

PATIENT
  Age: 28 Year
  Sex: Male
  Weight: 54 kg

DRUGS (2)
  1. CLONAZEPAM ORALLY DISINEGRATING TABLET .5MG USP [Suspect]
     Active Substance: CLONAZEPAM
     Indication: ANXIETY
     Dosage: ?          QUANTITY:1 TABLET(S);OTHER ROUTE:DISINEGRATE ON TONGUE?
     Dates: start: 20170101
  2. VITAMIN D [Concomitant]
     Active Substance: VITAMIN D NOS

REACTIONS (2)
  - Dental caries [None]
  - Tooth disorder [None]

NARRATIVE: CASE EVENT DATE: 20200128
